FAERS Safety Report 16085674 (Version 1)
Quarter: 2019Q1

REPORT INFORMATION
  Report Type: Spontaneous
  Country: CN (occurrence: CN)
  Receive Date: 20190318
  Receipt Date: 20190318
  Transmission Date: 20190418
  Serious: Yes (Hospitalization, Other)
  Sender: FDA-Public Use
  Company Number: CN-PFIZER INC-2019111850

PATIENT
  Age: 52 Year
  Sex: Male
  Weight: 62 kg

DRUGS (2)
  1. VFEND [Suspect]
     Active Substance: VORICONAZOLE
     Dosage: 200 MG, TWICE DAILY
     Route: 048
     Dates: start: 20190221, end: 20190222
  2. VFEND [Suspect]
     Active Substance: VORICONAZOLE
     Indication: PULMONARY MYCOSIS
     Dosage: 400 MG, TWICE DAILY (EVERY 12 HOURS)
     Route: 048
     Dates: start: 20190220, end: 20190220

REACTIONS (4)
  - Drug level increased [Unknown]
  - Kidney transplant rejection [Unknown]
  - Toxicity to various agents [Unknown]
  - Renal impairment [Recovered/Resolved]

NARRATIVE: CASE EVENT DATE: 20190222
